FAERS Safety Report 9819788 (Version 1)
Quarter: 2014Q1

REPORT INFORMATION
  Report Type: Report from Study
  Country: US (occurrence: US)
  Receive Date: 20140116
  Receipt Date: 20140116
  Transmission Date: 20141002
  Serious: Yes (Death)
  Sender: FDA-Public Use
  Company Number: US-ROCHE-1334512

PATIENT
  Sex: Male
  Weight: 103.78 kg

DRUGS (11)
  1. AVASTIN [Suspect]
     Indication: PRODUCT USED FOR UNKNOWN INDICATION
     Route: 041
     Dates: start: 20120605, end: 20120622
  2. CATHFLO ACTIVASE [Concomitant]
     Route: 041
     Dates: start: 20120621, end: 20120621
  3. NEULASTA [Concomitant]
     Route: 041
     Dates: start: 20120606, end: 20120621
  4. FLUOROURACIL [Concomitant]
     Route: 041
     Dates: start: 20120605, end: 20120621
  5. LEUCOVORIN [Concomitant]
     Route: 041
     Dates: start: 20120605, end: 20120621
  6. OXALIPLATIN [Concomitant]
     Route: 041
     Dates: start: 20120605, end: 20120621
  7. ALOXI [Concomitant]
     Route: 041
     Dates: start: 20120605, end: 20120621
  8. CALCIUM GLUCONATE [Concomitant]
     Route: 041
     Dates: start: 20120605, end: 20120621
  9. MAGNESIUM SULFATE [Concomitant]
     Route: 041
     Dates: start: 20120605, end: 20120621
  10. EMEND [Concomitant]
     Route: 041
     Dates: start: 20120605, end: 20120621
  11. DEXAMETHASONE [Concomitant]
     Route: 041
     Dates: start: 20120605, end: 20120621

REACTIONS (1)
  - Death [Fatal]
